FAERS Safety Report 17342978 (Version 1)
Quarter: 2020Q1

REPORT INFORMATION
  Report Type: Spontaneous
  Country: US (occurrence: US)
  Receive Date: 20200129
  Receipt Date: 20200129
  Transmission Date: 20200409
  Serious: No
  Sender: FDA-Public Use
  Company Number: US-ALLERGAN-1933778US

PATIENT
  Age: 54 Year
  Sex: Male

DRUGS (4)
  1. BOTOX COSMETIC [Suspect]
     Active Substance: ONABOTULINUMTOXINA
     Indication: SKIN WRINKLING
     Dosage: 18 UNITS, SINGLE (3 UNITS IN 6 SITES)
     Dates: start: 20190618, end: 20190618
  2. UNSPECIFIED TOPICAL MEDICATION [Concomitant]
     Indication: SEBORRHOEIC DERMATITIS
     Dosage: UNK
     Route: 061
  3. BOTOX COSMETIC [Suspect]
     Active Substance: ONABOTULINUMTOXINA
     Indication: SKIN WRINKLING
     Dosage: 22 UNITS, SINGLE (4 UNITS IN 4 SITES IN FOREHEAD PLUS 6 UNITS IN UPPER PART OF FOREHEAD)
     Dates: start: 20190618, end: 20190618
  4. BOTOX COSMETIC [Suspect]
     Active Substance: ONABOTULINUMTOXINA
     Indication: SKIN WRINKLING
     Dosage: 15 UNITS, SINGLE (3 UNITS IN 5 SITES)
     Dates: start: 20190618, end: 20190618

REACTIONS (1)
  - Drug ineffective [Unknown]

NARRATIVE: CASE EVENT DATE: 20190618
